FAERS Safety Report 13783733 (Version 1)
Quarter: 2017Q3

REPORT INFORMATION
  Report Type: Report from Study
  Country: US (occurrence: US)
  Receive Date: 20170724
  Receipt Date: 20170724
  Transmission Date: 20171127
  Serious: Yes (Other)
  Sender: FDA-Public Use
  Company Number: US-TEVA-789793USA

PATIENT
  Age: 39 Year
  Sex: Male

DRUGS (1)
  1. WARFARIN [Suspect]
     Active Substance: WARFARIN
     Route: 065

REACTIONS (3)
  - Tumour haemorrhage [Recovering/Resolving]
  - Hydrocephalus [Recovering/Resolving]
  - Hemiparesis [Recovering/Resolving]
